FAERS Safety Report 6427547-0 (Version None)
Quarter: 2009Q4

REPORT INFORMATION
  Report Type: 
  Country: None (occurrence: None)
  Receive Date: 20091030
  Receipt Date: 20091012
  Transmission Date: 20100525
  Serious: Yes (Death)
  Sender: FDA-Public Use
  Company Number: 20090464

PATIENT
  Age: 35 Year
  Sex: Female

DRUGS (1)
  1. LIDOCAINE HCL INJECTION,    USP (0625-25) 10 MG/ML [Suspect]
     Indication: LASER THERAPY

REACTIONS (3)
  - CONVULSION [None]
  - DRUG TOXICITY [None]
  - TOXICOLOGIC TEST ABNORMAL [None]
